FAERS Safety Report 8052754-3 (Version None)
Quarter: 2012Q1

REPORT INFORMATION
  Report Type: 
  Country: None (occurrence: None)
  Receive Date: 20120117
  Receipt Date: 20120117
  Transmission Date: 20120608
  Serious: Yes (Hospitalization)
  Sender: FDA-Public Use
  Company Number: None

PATIENT
  Age: 59 Year
  Sex: Male
  Weight: 49.5 kg

DRUGS (1)
  1. GEMCITABINE [Suspect]
     Dosage: 960 MG QWEEK IV
     Route: 042
     Dates: start: 20110630, end: 20110808

REACTIONS (4)
  - VOMITING [None]
  - NAUSEA [None]
  - DEHYDRATION [None]
  - HYPONATRAEMIA [None]
